FAERS Safety Report 10576946 (Version 1)
Quarter: 2014Q4

REPORT INFORMATION
  Report Type: Spontaneous
  Country: IT (occurrence: IT)
  Receive Date: 20141111
  Receipt Date: 20141111
  Transmission Date: 20150529
  Serious: Yes (Other)
  Sender: FDA-Public Use
  Company Number: IT-JNJFOC-20141103552

PATIENT
  Age: 65 Year
  Sex: Male

DRUGS (4)
  1. PALEXIA [Suspect]
     Active Substance: TAPENTADOL HYDROCHLORIDE
     Indication: NEURALGIA
     Route: 048
  2. PALEXIA [Suspect]
     Active Substance: TAPENTADOL HYDROCHLORIDE
     Indication: LUMBAR SPINAL STENOSIS
     Route: 048
  3. PALEXIA [Suspect]
     Active Substance: TAPENTADOL HYDROCHLORIDE
     Indication: NEURALGIA
     Route: 048
  4. PALEXIA [Suspect]
     Active Substance: TAPENTADOL HYDROCHLORIDE
     Indication: LUMBAR SPINAL STENOSIS
     Route: 048

REACTIONS (5)
  - Intentional product misuse [Unknown]
  - Confusional state [Unknown]
  - Nausea [Unknown]
  - Vomiting [Unknown]
  - Vertigo [Unknown]
